FAERS Safety Report 14264631 (Version 1)
Quarter: 2017Q4

REPORT INFORMATION
  Report Type: Spontaneous
  Country: GB (occurrence: IT)
  Receive Date: 20171208
  Receipt Date: 20171208
  Transmission Date: 20180321
  Serious: Yes (Other)
  Sender: FDA-Public Use
  Company Number: IT-FRESENIUS KABI-FK201710474

PATIENT
  Age: 33 Year
  Sex: Male

DRUGS (1)
  1. ROCURONIUMBROMID KABI 10 MG/ML [Suspect]
     Active Substance: ROCURONIUM BROMIDE
     Indication: MUSCLE RELAXANT THERAPY
     Route: 040
     Dates: start: 20171120, end: 20171120

REACTIONS (2)
  - Drug ineffective [Recovering/Resolving]
  - Capnogram abnormal [Recovering/Resolving]

NARRATIVE: CASE EVENT DATE: 20171120
